FAERS Safety Report 14254735 (Version 1)
Quarter: 2017Q4

REPORT INFORMATION
  Report Type: Spontaneous
  Country: US (occurrence: US)
  Receive Date: 20171205
  Receipt Date: 20171205
  Transmission Date: 20180321
  Serious: Yes (Other)
  Sender: FDA-Public Use
  Company Number: None

PATIENT
  Sex: Female

DRUGS (7)
  1. COQ10 [Concomitant]
     Active Substance: UBIDECARENONE
  2. ANASTROZOLE. [Concomitant]
     Active Substance: ANASTROZOLE
  3. DEXAMETHASON [Concomitant]
     Active Substance: DEXAMETHASONE
  4. ATORVASTATIN [Concomitant]
     Active Substance: ATORVASTATIN
  5. OMEPRAZOLE. [Concomitant]
     Active Substance: OMEPRAZOLE
  6. BIOTIN [Concomitant]
     Active Substance: BIOTIN
  7. CAPECITABINE. [Suspect]
     Active Substance: CAPECITABINE
     Indication: NEOPLASM MALIGNANT
     Route: 048
     Dates: start: 20171104

REACTIONS (7)
  - Palmar-plantar erythrodysaesthesia syndrome [None]
  - Fatigue [None]
  - Therapy cessation [None]
  - Platelet count decreased [None]
  - Stomatitis [None]
  - Neuropathy peripheral [None]
  - Blister [None]
